FAERS Safety Report 5320633-8 (Version None)
Quarter: 2007Q2

REPORT INFORMATION
  Report Type: 
  Country: None (occurrence: None)
  Receive Date: 20070502
  Receipt Date: 20070417
  Transmission Date: 20071010
  Serious: Yes (Hospitalization)
  Sender: FDA-Public Use
  Company Number: US019937

PATIENT
  Age: 33 Year
  Sex: Female
  Weight: 72.5755 kg

DRUGS (3)
  1. ACTIQ [Suspect]
     Indication: BREAKTHROUGH PAIN
     Dosage: 1600 UG QID BUCCAL
     Route: 002
     Dates: start: 19990101, end: 20051001
  2. ACTIQ [Suspect]
     Indication: CANCER PAIN
     Dosage: 1600 UG QID BUCCAL
     Route: 002
     Dates: start: 19990101, end: 20051001
  3. OXYCONTIN [Concomitant]

REACTIONS (3)
  - PARANOIA [None]
  - TOOTH DISORDER [None]
  - TOOTH FRACTURE [None]
